FAERS Safety Report 4485854-5 (Version None)
Quarter: 2004Q4

REPORT INFORMATION
  Report Type: 
  Country: None (occurrence: None)
  Receive Date: 20041026
  Receipt Date: 20041022
  Transmission Date: 20050328
  Serious: Yes (Hospitalization)
  Sender: FDA-Public Use
  Company Number: PHBS2004JP13959

PATIENT
  Age: 58 Year
  Sex: Male

DRUGS (5)
  1. FASTIC #AJ [Suspect]
     Indication: BLOOD GLUCOSE INCREASED
     Dosage: 90 MG, BID
     Route: 048
     Dates: start: 20040805, end: 20040916
  2. BASEN [Concomitant]
     Indication: BLOOD GLUCOSE INCREASED
     Dosage: .6 MG, UNK
     Dates: start: 20030818, end: 20040805
  3. RENIVACE [Concomitant]
     Indication: HYPERTENSION
     Dosage: 2.5 MG, UNK
     Dates: start: 20030818
  4. ALDACTONE-A [Concomitant]
     Indication: HYPERTENSION
     Dosage: 25 MG, UNK
     Dates: start: 20030818
  5. DIART [Concomitant]
     Indication: HYPERTENSION
     Dosage: 15 MG, UNK
     Dates: start: 20030818

REACTIONS (2)
  - IDIOPATHIC THROMBOCYTOPENIC PURPURA [None]
  - PLATELET COUNT DECREASED [None]
